FAERS Safety Report 9204123 (Version 1)
Quarter: 2013Q1

REPORT INFORMATION
  Report Type: Spontaneous
  Country: US (occurrence: None)
  Receive Date: 20120709
  Receipt Date: 20120709
  Transmission Date: 20140127
  Serious: Yes (Other)
  Sender: FDA-Public Use
  Company Number: PHEH2011US07507

PATIENT
  Age: 59 Year
  Sex: Female
  Weight: 97.1 kg

DRUGS (17)
  1. GLEEVEC (IMATINIB) [Suspect]
     Route: 048
  2. ADVIL [Concomitant]
  3. SAXAGLIPTIN [Concomitant]
  4. XANAX [Concomitant]
  5. PAXIL [Concomitant]
  6. NEURONTIN [Concomitant]
  7. LYRICA [Concomitant]
  8. PRANDIN [Concomitant]
  9. CORGARD [Concomitant]
  10. ANTICHOLINERGICS [Concomitant]
  11. ANTIHYPERTENSIVES [Concomitant]
  12. PREVACID [Concomitant]
  13. CORGARD [Concomitant]
  14. AMARYL [Concomitant]
  15. GLUCOPHAGE [Concomitant]
  16. NORVASC [Concomitant]
  17. DIURETICS (NO INGREDIENTS/SUBSTANCES) [Concomitant]

REACTIONS (9)
  - Renal impairment [None]
  - Neuropathy peripheral [None]
  - Periorbital oedema [None]
  - Depression [None]
  - Visual impairment [None]
  - Nausea [None]
  - Flank pain [None]
  - Arthralgia [None]
  - Vomiting [None]
